FAERS Safety Report 8791813 (Version 3)
Quarter: 2012Q4

REPORT INFORMATION
  Report Type: 
  Country: US (occurrence: US)
  Receive Date: 20120918
  Receipt Date: 20121217
  Transmission Date: 20130627
  Serious: Yes (Hospitalization)
  Sender: FDA-Public Use
  Company Number: US-AMGEN-USASP2012058815

PATIENT
  Age: 69 Year
  Sex: Female
  Weight: 82.09 kg

DRUGS (1)
  1. ENBREL [Suspect]
     Indication: PSORIATIC ARTHROPATHY
     Dosage: 50 mg, qwk
     Route: 058
     Dates: start: 200904

REACTIONS (3)
  - Osteoarthritis [Unknown]
  - Cataract [Not Recovered/Not Resolved]
  - Injection site pain [Not Recovered/Not Resolved]
